FAERS Safety Report 23625848 (Version 1)
Quarter: 2024Q1

REPORT INFORMATION
  Report Type: Spontaneous
  Country: RU (occurrence: RU)
  Receive Date: 20240313
  Receipt Date: 20240313
  Transmission Date: 20240410
  Serious: Yes (Other)
  Sender: FDA-Public Use
  Company Number: RU-002147023-NVSC2024RU048014

PATIENT
  Age: 30 Year
  Sex: Female

DRUGS (2)
  1. VOTRIENT [Suspect]
     Active Substance: PAZOPANIB HYDROCHLORIDE
     Indication: Product used for unknown indication
     Dosage: 800 MG, QD
     Route: 065
     Dates: start: 20221017, end: 20230122
  2. CELECOXIB [Concomitant]
     Active Substance: CELECOXIB
     Indication: Metastasis
     Dosage: 200 MG, BID
     Route: 065
     Dates: start: 202204

REACTIONS (2)
  - Ascites [Unknown]
  - Malignant neoplasm progression [Unknown]

NARRATIVE: CASE EVENT DATE: 20230120
